FAERS Safety Report 11410107 (Version 1)
Quarter: 2015Q3

REPORT INFORMATION
  Report Type: Spontaneous
  Country: US (occurrence: None)
  Receive Date: 20150814
  Receipt Date: 20150814
  Transmission Date: 20151125
  Serious: Yes (Other)
  Sender: FDA-Public Use
  Company Number: ADE15-047

PATIENT
  Age: 66 Year
  Sex: Male
  Weight: 95.26 kg

DRUGS (3)
  1. ZANTAC [Concomitant]
     Active Substance: RANITIDINE HYDROCHLORIDE
  2. ZYRTEC [Concomitant]
     Active Substance: CETIRIZINE HYDROCHLORIDE
  3. OCTREOTIDE ACETATE INJECTION PRESERVATIVE FREE, SDV, 1 ML, 0.1 MG/ML, 2X-SAGENT [Suspect]
     Active Substance: OCTREOTIDE ACETATE
     Indication: CARCINOID SYNDROME
     Route: 058
     Dates: start: 20150713

REACTIONS (1)
  - Injection site pain [None]

NARRATIVE: CASE EVENT DATE: 20150713
